FAERS Safety Report 24987430 (Version 1)
Quarter: 2025Q1

REPORT INFORMATION
  Report Type: Spontaneous
  Country: US (occurrence: US)
  Receive Date: 20250219
  Receipt Date: 20250219
  Transmission Date: 20250409
  Serious: No
  Sender: CARDINAL HEALTH
  Company Number: US-Cardinal Health 414-NPHS-AE-24-66

PATIENT
  Age: 63 Year
  Sex: Male

DRUGS (1)
  1. TECHNETIUM TC-99M MEDRONATE KIT [Suspect]
     Active Substance: TECHNETIUM TC-99M MEDRONATE
     Indication: Bone scan
     Route: 042
     Dates: start: 20241107, end: 20241107

REACTIONS (1)
  - Radioisotope uptake increased [Recovered/Resolved]

NARRATIVE: CASE EVENT DATE: 20241107
